FAERS Safety Report 5126517-2 (Version None)
Quarter: 2006Q4

REPORT INFORMATION
  Report Type: 
  Country: None (occurrence: None)
  Receive Date: 20061010
  Receipt Date: 20060926
  Transmission Date: 20070319
  Serious: Yes (Hospitalization)
  Sender: FDA-Public Use
  Company Number: 2006CT000698

PATIENT
  Age: 81 Year
  Sex: Male
  Weight: 74.3899 kg

DRUGS (18)
  1. VENTAVIS [Suspect]
     Indication: PULMONARY HYPERTENSION
     Dosage: 5 UG; 6XD; INH
     Route: 055
     Dates: start: 20060303
  2. ASPIRIN [Suspect]
     Dosage: 81 MG;
     Dates: end: 20060801
  3. SILDENAFIL [Suspect]
     Dosage: 40 MG; TID
  4. SILDENAFIL [Suspect]
     Dosage: 80 MG; TID
  5. MILK OF MAGNESIA TAB [Concomitant]
  6. METAMUCIL [Concomitant]
  7. AMBIEN [Concomitant]
  8. PROSCAR [Concomitant]
  9. ALDACTONE [Concomitant]
  10. SENNA [Concomitant]
  11. TYLENOL [Concomitant]
  12. LASIX [Concomitant]
  13. XANAX [Concomitant]
  14. HYDROCHLOROTHIAZIDE [Concomitant]
  15. TAMSULOSIN HCL [Concomitant]
  16. LEXAPRO [Concomitant]
  17. COLACE [Concomitant]
  18. OXYGEN [Concomitant]

REACTIONS (4)
  - HAEMOPTYSIS [None]
  - LUNG INFILTRATION [None]
  - PULMONARY HAEMORRHAGE [None]
  - UPPER RESPIRATORY TRACT INFECTION [None]
